FAERS Safety Report 9361376 (Version 2)
Quarter: 2013Q2

REPORT INFORMATION
  Report Type: Report from Study
  Country: US (occurrence: US)
  Receive Date: 20130621
  Receipt Date: 20130627
  Transmission Date: 20140414
  Serious: Yes (Other)
  Sender: FDA-Public Use
  Company Number: US-PFIZER INC-2013186207

PATIENT
  Age: 13 Year
  Sex: Female

DRUGS (4)
  1. RISPERIDONE [Suspect]
     Indication: DEVELOPMENTAL DELAY
     Dosage: 1 MG, DAILY
  2. RISPERIDONE [Suspect]
     Dosage: 3 MG, DAILY
  3. PROPANOLOL [Concomitant]
     Indication: AGGRESSION
     Dosage: 240 MG, DAILY
  4. CARBAMAZEPINE [Concomitant]
     Indication: CONVULSION
     Dosage: 700 MG, DAILY

REACTIONS (1)
  - Weight increased [Unknown]
